FAERS Safety Report 5836130-7 (Version None)
Quarter: 2008Q3

REPORT INFORMATION
  Report Type: 
  Country: None (occurrence: None)
  Receive Date: 20080805
  Receipt Date: 20080722
  Transmission Date: 20090109
  Serious: Yes (Hospitalization)
  Sender: FDA-Public Use
  Company Number: 2008000882

PATIENT
  Age: 52 Year
  Sex: Male

DRUGS (4)
  1. ERLOTINIB (ERLOTINIB HCL) (TABLET) (ERLOTINIB HCL) [Suspect]
     Indication: LUNG ADENOCARCINOMA
     Dosage: 150 MG, QD, ORAL
     Route: 048
     Dates: start: 20080213, end: 20080314
  2. URSO 250 [Concomitant]
  3. HOCHU-EKKI-TO [Concomitant]
  4. MOHRUS (KETOPROFEN) [Concomitant]

REACTIONS (10)
  - ANOREXIA [None]
  - ATRIAL SEPTAL DEFECT [None]
  - CARDIOVASCULAR DISORDER [None]
  - CONVULSION [None]
  - DERMATITIS ACNEIFORM [None]
  - DIARRHOEA [None]
  - LUNG NEOPLASM MALIGNANT [None]
  - MALIGNANT NEOPLASM PROGRESSION [None]
  - METASTASES TO CENTRAL NERVOUS SYSTEM [None]
  - VENTRICULAR SEPTAL DEFECT [None]
